FAERS Safety Report 13645812 (Version 3)
Quarter: 2017Q3

REPORT INFORMATION
  Report Type: Spontaneous
  Country: US (occurrence: US)
  Receive Date: 20170613
  Receipt Date: 20170703
  Transmission Date: 20171127
  Serious: Yes (Hospitalization, Other)
  Sender: FDA-Public Use
  Company Number: US-SHIRE-US201712794

PATIENT
  Age: 6 Year
  Sex: Male

DRUGS (1)
  1. ELAPRASE [Suspect]
     Active Substance: IDURSULFASE
     Indication: MUCOPOLYSACCHARIDOSIS
     Dosage: 24 MG, 1X/WEEK
     Route: 041
     Dates: start: 20161108

REACTIONS (7)
  - Apnoea [Not Recovered/Not Resolved]
  - Post procedural complication [Unknown]
  - Ear disorder [Unknown]
  - Swollen tongue [Not Recovered/Not Resolved]
  - Bronchial secretion retention [Unknown]
  - Respiratory arrest [Recovered/Resolved]
  - Cardiac arrest [Recovered/Resolved]

NARRATIVE: CASE EVENT DATE: 20170605
